FAERS Safety Report 18283868 (Version 2)
Quarter: 2020Q4

REPORT INFORMATION
  Report Type: Report from Study
  Country: US (occurrence: US)
  Receive Date: 20200918
  Receipt Date: 20201012
  Transmission Date: 20210113
  Serious: No
  Sender: FDA-Public Use
  Company Number: US-JNJFOC-20200930623

PATIENT
  Age: 31 Year
  Sex: Male

DRUGS (2)
  1. TREMFYA [Suspect]
     Active Substance: GUSELKUMAB
     Indication: PSORIASIS
     Route: 058
     Dates: start: 20200902
  2. TREMFYA [Suspect]
     Active Substance: GUSELKUMAB

REACTIONS (5)
  - Headache [Unknown]
  - Skin swelling [Unknown]
  - Adverse drug reaction [Not Recovered/Not Resolved]
  - Contusion [Unknown]
  - Mass [Unknown]

NARRATIVE: CASE EVENT DATE: 2020
